FAERS Safety Report 5955876-3 (Version None)
Quarter: 2008Q4

REPORT INFORMATION
  Report Type: 
  Country: None (occurrence: None)
  Receive Date: 20081113
  Receipt Date: 20081102
  Transmission Date: 20090506
  Serious: Yes (Hospitalization)
  Sender: FDA-Public Use
  Company Number: 1-16816614/MED-08203

PATIENT
  Age: 25 Year
  Sex: Male

DRUGS (1)
  1. CARISOPRODOL TABLET 350 MG [Suspect]
     Dosage: OVER 30 TABLETS DAILY, ORAL
     Route: 048

REACTIONS (3)
  - DRUG ABUSE [None]
  - PSYCHOTIC DISORDER [None]
  - WITHDRAWAL SYNDROME [None]
